FAERS Safety Report 25411606 (Version 1)
Quarter: 2025Q2

REPORT INFORMATION
  Report Type: Spontaneous
  Country: US (occurrence: US)
  Receive Date: 20250609
  Receipt Date: 20250609
  Transmission Date: 20250717
  Serious: No
  Sender: TEVA
  Company Number: US-TEVA-VS-3228150

PATIENT
  Age: 87 Year
  Sex: Male
  Weight: 76.02 kg

DRUGS (2)
  1. AUSTEDO XR [Suspect]
     Active Substance: DEUTETRABENAZINE
     Indication: Chorea
     Dosage: PREVIOUS DOSING: AUSTEDO XR 6 MG + AUSTEDO XR 12 MG DAILY (18 MG DAILY)
     Route: 048
  2. AUSTEDO XR [Suspect]
     Active Substance: DEUTETRABENAZINE
     Indication: Chorea
     Dosage: 18 MG, 1 TABLET BY MOUTH ONCE DAILY
     Route: 048

REACTIONS (3)
  - Pruritus [Unknown]
  - Off label use [Unknown]
  - Peripheral swelling [Unknown]

NARRATIVE: CASE EVENT DATE: 20240729
